FAERS Safety Report 25189468 (Version 1)
Quarter: 2025Q2

REPORT INFORMATION
  Report Type: Spontaneous
  Country: ES (occurrence: ES)
  Receive Date: 20250411
  Receipt Date: 20250411
  Transmission Date: 20250716
  Serious: Yes (Hospitalization, Other)
  Sender: RANBAXY
  Company Number: ES-AEMPS-1630690

PATIENT
  Age: 25 Year
  Sex: Male

DRUGS (1)
  1. ACETAMINOPHEN [Suspect]
     Active Substance: ACETAMINOPHEN
     Indication: Product used for unknown indication
     Route: 065
     Dates: start: 20241007

REACTIONS (1)
  - Anaphylactic shock [Recovering/Resolving]

NARRATIVE: CASE EVENT DATE: 20241007
